FAERS Safety Report 6822540-8 (Version None)
Quarter: 2010Q3

REPORT INFORMATION
  Report Type: 
  Country: None (occurrence: None)
  Receive Date: 20100708
  Receipt Date: 20100630
  Transmission Date: 20110219
  Serious: Yes (Hospitalization)
  Sender: FDA-Public Use
  Company Number: JP-BAXTER-2010BH017199

PATIENT
  Age: 66 Year
  Sex: Male

DRUGS (11)
  1. ENDOXAN BAXTER [Suspect]
     Indication: PRODUCT USED FOR UNKNOWN INDICATION
     Route: 065
     Dates: start: 20100511, end: 20100521
  2. FINIBAX [Suspect]
     Indication: NEUTROPHIL COUNT DECREASED
     Route: 041
     Dates: start: 20100525, end: 20100531
  3. FINIBAX [Suspect]
     Indication: PYREXIA
     Route: 041
     Dates: start: 20100525, end: 20100531
  4. PREDONINE [Concomitant]
     Indication: ERYTHEMA MULTIFORME
     Route: 048
     Dates: start: 20100401
  5. PREDONINE [Concomitant]
     Route: 048
     Dates: start: 20100525
  6. COTRIM [Concomitant]
     Indication: PRODUCT USED FOR UNKNOWN INDICATION
     Route: 065
     Dates: start: 20100510
  7. ALLEGRA [Concomitant]
     Indication: ERYTHEMA MULTIFORME
     Route: 048
     Dates: start: 20100424
  8. BONALON [Concomitant]
     Indication: PRODUCT USED FOR UNKNOWN INDICATION
     Route: 048
     Dates: start: 20100425
  9. TAKEPRON [Concomitant]
     Indication: PRODUCT USED FOR UNKNOWN INDICATION
     Route: 048
     Dates: start: 20100425
  10. CRAVIT [Concomitant]
     Indication: PRODUCT USED FOR UNKNOWN INDICATION
     Route: 048
     Dates: start: 20100517
  11. ITRIZOLE [Concomitant]
     Indication: PRODUCT USED FOR UNKNOWN INDICATION
     Route: 048
     Dates: start: 20100517

REACTIONS (1)
  - ERYTHEMA MULTIFORME [None]
